FAERS Safety Report 12677728 (Version 1)
Quarter: 2016Q3

REPORT INFORMATION
  Report Type: Other
  Country: EE (occurrence: EE)
  Receive Date: 20160823
  Receipt Date: 20160823
  Transmission Date: 20161109
  Serious: Yes (Hospitalization)
  Sender: FDA-Public Use
  Company Number: EE-HQ SPECIALTY-EE-2016INT000830

PATIENT
  Age: 64 Year
  Sex: Male

DRUGS (4)
  1. HUMIRA [Suspect]
     Active Substance: ADALIMUMAB
     Indication: ANKYLOSING SPONDYLITIS
     Dosage: 40 MG/0.8 ML (40 MG, 2 IN 1 MO)
     Route: 058
     Dates: start: 20111201
  2. METHOTREXATE SODIUM. [Suspect]
     Active Substance: METHOTREXATE SODIUM
     Indication: ANKYLOSING SPONDYLITIS
     Dosage: 1.0714 MG (7.5 MG,1 IN 1 W)
     Route: 048
     Dates: end: 20160702
  3. PANTOPRAZOLE [Concomitant]
     Active Substance: PANTOPRAZOLE SODIUM
     Indication: GASTRITIS
     Dosage: 20 MG (20 MG,1 IN 1 D)
     Route: 048
  4. PREDNISOLON-RICHTER /00016201/ [Suspect]
     Active Substance: PREDNISOLONE
     Indication: ANKYLOSING SPONDYLITIS
     Dosage: 5 MG (5 MG,1 IN 1 D)
     Route: 048

REACTIONS (1)
  - Cholecystitis acute [Recovering/Resolving]

NARRATIVE: CASE EVENT DATE: 20160702
